FAERS Safety Report 5609414-5 (Version None)
Quarter: 2008Q1

REPORT INFORMATION
  Report Type: 
  Country: None (occurrence: None)
  Receive Date: 20080131
  Receipt Date: 20080116
  Transmission Date: 20080703
  Serious: Yes (Congenital Anomaly)
  Sender: FDA-Public Use
  Company Number: GB-GENENTECH-254707

PATIENT
  Sex: Female

DRUGS (1)
  1. HERCEPTIN [Suspect]
     Indication: BREAST CANCER
     Route: 064
     Dates: start: 20070115

REACTIONS (2)
  - DRUG EXPOSURE DURING PREGNANCY [None]
  - KIDNEY MALFORMATION [None]
